FAERS Safety Report 9791687 (Version 1)
Quarter: 2014Q1

REPORT INFORMATION
  Report Type: Spontaneous
  Country: US (occurrence: US)
  Receive Date: 20140102
  Receipt Date: 20140102
  Transmission Date: 20141002
  Serious: No
  Sender: FDA-Public Use
  Company Number: US-009507513-1312USA012557

PATIENT
  Sex: Female

DRUGS (1)
  1. COSOPT PF [Suspect]
     Dosage: UNK
     Route: 047
     Dates: start: 201112

REACTIONS (1)
  - Visual impairment [Unknown]
